FAERS Safety Report 18386850 (Version 1)
Quarter: 2020Q4

REPORT INFORMATION
  Report Type: Spontaneous
  Country: IT (occurrence: IT)
  Receive Date: 20201015
  Receipt Date: 20201015
  Transmission Date: 20210114
  Serious: Yes (Hospitalization, Other)
  Sender: FDA-Public Use
  Company Number: IT-LUPIN PHARMACEUTICALS INC.-2020-07283

PATIENT
  Age: 94 Year
  Sex: Female

DRUGS (3)
  1. NACL [Concomitant]
     Active Substance: SODIUM CHLORIDE
     Indication: FLUID REPLACEMENT
     Dosage: 1000 MILLILITER, QD (24H/PER DAY)
     Route: 065
  2. LEVOTHYROXINE. [Suspect]
     Active Substance: LEVOTHYROXINE
     Indication: HYPOTHYROIDISM
     Dosage: UNK
     Route: 065
  3. HALOPERIDOL. [Interacting]
     Active Substance: HALOPERIDOL
     Indication: DELIRIUM
     Dosage: 1 MILLIGRAM
     Route: 030

REACTIONS (4)
  - Epistaxis [Recovered/Resolved]
  - Myoclonus [Recovered/Resolved]
  - Drug interaction [Unknown]
  - Pancytopenia [Recovered/Resolved]
